FAERS Safety Report 19624263 (Version 1)
Quarter: 2021Q3

REPORT INFORMATION
  Report Type: Report from Study
  Country: CA (occurrence: CA)
  Receive Date: 20210729
  Receipt Date: 20210729
  Transmission Date: 20211014
  Serious: Yes (Other)
  Sender: FDA-Public Use
  Company Number: CA-CELLTRION INC.-2021CA010031

PATIENT

DRUGS (1)
  1. TRUXIMA [Suspect]
     Active Substance: RITUXIMAB-ABBS
     Indication: CHRONIC LYMPHOCYTIC LEUKAEMIA
     Dosage: 900 MG
     Route: 042
     Dates: start: 20210607

REACTIONS (3)
  - Headache [Unknown]
  - Dermatitis exfoliative generalised [Unknown]
  - Tachycardia [Unknown]

NARRATIVE: CASE EVENT DATE: 202107
